FAERS Safety Report 8462063-6 (Version None)
Quarter: 2012Q2

REPORT INFORMATION
  Report Type: 
  Country: None (occurrence: None)
  Receive Date: 20120625
  Receipt Date: 20120614
  Transmission Date: 20120825
  Serious: Yes (Hospitalization, Disabling)
  Sender: FDA-Public Use
  Company Number: JP-ASTRAZENECA-2012SE37058

PATIENT
  Age: 64 Year
  Sex: Female
  Weight: 67 kg

DRUGS (14)
  1. WARFARIN SODIUM [Interacting]
     Route: 048
     Dates: start: 20100101, end: 20120529
  2. LENDORMIN [Concomitant]
     Route: 048
     Dates: start: 20100101
  3. FOSRENOL [Concomitant]
     Route: 048
     Dates: start: 20100101
  4. CINACALCET HYDROCHLORIDE [Concomitant]
     Route: 048
     Dates: start: 20100101
  5. MEROPENEM [Concomitant]
     Route: 042
     Dates: start: 20120428, end: 20120515
  6. NEXIUM [Suspect]
     Indication: PROPHYLAXIS AGAINST GASTROINTESTINAL ULCER
     Route: 048
     Dates: start: 20120505, end: 20120530
  7. CEFAZOLIN [Concomitant]
     Route: 042
     Dates: start: 20120516, end: 20120605
  8. LIPITOR [Concomitant]
     Route: 048
     Dates: start: 20100101
  9. AMLODIPINE [Concomitant]
     Route: 048
     Dates: start: 20100101
  10. LASIX [Concomitant]
     Route: 048
     Dates: start: 20100101
  11. AVAPRO [Concomitant]
     Route: 048
     Dates: start: 20120425
  12. MUCOSTA [Concomitant]
     Route: 048
     Dates: start: 20120515
  13. SEVELAMER HYDROCHLORIDE [Concomitant]
     Route: 048
     Dates: start: 20100101
  14. DIART [Concomitant]
     Route: 048
     Dates: start: 20100101

REACTIONS (3)
  - HAEMORRHAGIC DIATHESIS [None]
  - INTERNATIONAL NORMALISED RATIO INCREASED [None]
  - DRUG INTERACTION [None]
